FAERS Safety Report 5957794-3 (Version None)
Quarter: 2008Q4

REPORT INFORMATION
  Report Type: 
  Country: None (occurrence: None)
  Receive Date: 20081119
  Receipt Date: 20081112
  Transmission Date: 20090506
  Serious: Yes (Other)
  Sender: FDA-Public Use
  Company Number: DE-WYE-G02558508

PATIENT
  Sex: Female

DRUGS (3)
  1. TREVILOR RETARD [Suspect]
     Route: 048
     Dates: start: 20081001
  2. EQUILIBRIN [Concomitant]
     Dosage: UNKNOWN
  3. NEXIUM [Concomitant]
     Dosage: UNKNOWN

REACTIONS (1)
  - CIRCULATORY COLLAPSE [None]
